FAERS Safety Report 9354464 (Version 2)
Quarter: 2013Q3

REPORT INFORMATION
  Report Type: Spontaneous
  Country: US (occurrence: US)
  Receive Date: 20130618
  Receipt Date: 20130702
  Transmission Date: 20140515
  Serious: Yes (Death, Hospitalization)
  Sender: FDA-Public Use
  Company Number: US-GILEAD-2013-0077379

PATIENT
  Sex: Male

DRUGS (25)
  1. LETAIRIS [Suspect]
     Indication: CHRONIC OBSTRUCTIVE PULMONARY DISEASE
     Dosage: 5 MG, UNK
     Dates: start: 20090108
  2. LETAIRIS [Suspect]
     Indication: PULMONARY EMBOLISM
  3. LETAIRIS [Suspect]
     Indication: PULMONARY HYPERTENSION
  4. ALLOPURINOL [Concomitant]
  5. COREG [Concomitant]
  6. ABILIFY [Concomitant]
  7. LASIX                              /00032601/ [Concomitant]
  8. REVATIO [Concomitant]
  9. POTASSIUM [Concomitant]
  10. RANITIDINE [Concomitant]
  11. EFFEXOR [Concomitant]
  12. LITHIUM [Concomitant]
  13. COUMADIN                           /00014802/ [Concomitant]
  14. SPIRIVA [Concomitant]
  15. ADVAIR [Concomitant]
  16. DIAZEPAM [Concomitant]
  17. HYDROCODONE [Concomitant]
  18. ACETAMINOPHEN [Concomitant]
  19. TRICOR                             /00090101/ [Concomitant]
     Indication: CHRONIC OBSTRUCTIVE PULMONARY DISEASE
  20. TRICOR                             /00090101/ [Concomitant]
     Indication: PULMONARY EMBOLISM
  21. TRICOR                             /00090101/ [Concomitant]
     Indication: PULMONARY HYPERTENSION
  22. TOPAMAX [Concomitant]
     Indication: PULMONARY HYPERTENSION
  23. TOPAMAX [Concomitant]
     Indication: CHRONIC OBSTRUCTIVE PULMONARY DISEASE
  24. TOPAMAX [Concomitant]
     Indication: PULMONARY EMBOLISM
  25. SIMVASTATIN [Concomitant]

REACTIONS (3)
  - Thrombolysis [Fatal]
  - Deep vein thrombosis [Fatal]
  - Thrombosis [Fatal]
